FAERS Safety Report 10896967 (Version 1)
Quarter: 2015Q1

REPORT INFORMATION
  Report Type: Spontaneous
  Country: US (occurrence: None)
  Receive Date: 20150302
  Receipt Date: 20150302
  Transmission Date: 20150721
  Serious: Yes (Hospitalization)
  Sender: FDA-Public Use
  Company Number: None

PATIENT
  Age: 77 Year
  Sex: Male
  Weight: 83.92 kg

DRUGS (19)
  1. LORAZEPAM. [Concomitant]
     Active Substance: LORAZEPAM
  2. FLOMAX [Concomitant]
     Active Substance: TAMSULOSIN HYDROCHLORIDE
  3. FINASTERIDE. [Concomitant]
     Active Substance: FINASTERIDE
  4. ADVAIR DISKUS [Concomitant]
     Active Substance: FLUTICASONE PROPIONATE\SALMETEROL XINAFOATE
  5. MELATONIN [Concomitant]
     Active Substance: MELATONIN
  6. FLUTICASONE PROPIONATE. [Concomitant]
     Active Substance: FLUTICASONE PROPIONATE
  7. MULTIVITAMINS [Concomitant]
     Active Substance: VITAMINS
  8. XARELTO [Suspect]
     Active Substance: RIVAROXABAN
     Indication: CARDIAC FAILURE
     Route: 048
     Dates: start: 20150206, end: 20150215
  9. CARVEDILOL. [Concomitant]
     Active Substance: CARVEDILOL
  10. SPIRONOLACTONE. [Concomitant]
     Active Substance: SPIRONOLACTONE
  11. VITAMIN E [Concomitant]
     Active Substance: .ALPHA.-TOCOPHEROL
  12. PROTONIX [Concomitant]
     Active Substance: PANTOPRAZOLE SODIUM
  13. CPAP MACHINE [Concomitant]
  14. MUCINEX [Concomitant]
     Active Substance: GUAIFENESIN
  15. PROBIOTIC [Concomitant]
     Active Substance: PROBIOTICS NOS
  16. OXYGEN. [Concomitant]
     Active Substance: OXYGEN
  17. VITAMIN C [Concomitant]
     Active Substance: ASCORBIC ACID
  18. AMIODARONE [Concomitant]
     Active Substance: AMIODARONE
  19. CENTRIZINE HYDROCHLORIDE [Concomitant]

REACTIONS (5)
  - Faeces discoloured [None]
  - Full blood count decreased [None]
  - Fatigue [None]
  - Abnormal faeces [None]
  - Haematochezia [None]

NARRATIVE: CASE EVENT DATE: 20150217
